FAERS Safety Report 7541609-6 (Version None)
Quarter: 2011Q2

REPORT INFORMATION
  Report Type: 
  Country: None (occurrence: None)
  Receive Date: 20110603
  Receipt Date: 20110519
  Transmission Date: 20111010
  Serious: Yes (Hospitalization)
  Sender: FDA-Public Use
  Company Number: AUR-APL-2011-01746

PATIENT
  Age: 58 Year
  Sex: Female
  Weight: 65 kg

DRUGS (7)
  1. FLUCONAZOLE [Suspect]
  2. CARBAMAZEPINE [Concomitant]
  3. FLUOXETINE HYDROCHLORIDE [Concomitant]
  4. SERETIDE [Concomitant]
  5. CANDESARTAN CILEXETIL [Concomitant]
  6. ACETAMINOPHEN AND CODEINE PHOSPHATE [Concomitant]
  7. ALBUTEROL [Concomitant]

REACTIONS (2)
  - JAUNDICE [None]
  - HEPATOMEGALY [None]
